FAERS Safety Report 10900444 (Version 1)
Quarter: 2015Q1

REPORT INFORMATION
  Report Type: Spontaneous
  Country: US (occurrence: None)
  Receive Date: 20150303
  Receipt Date: 20150303
  Transmission Date: 20150721
  Serious: Yes (Disabling, Other)
  Sender: FDA-Public Use
  Company Number: None

PATIENT
  Sex: Female
  Weight: 49.9 kg

DRUGS (1)
  1. DORZOLAMIDE [Suspect]
     Active Substance: DORZOLAMIDE
     Dosage: 1 DROP EACH EYE A.M. + P.M.
     Route: 047
     Dates: start: 20150107, end: 20150128

REACTIONS (6)
  - Colitis [None]
  - Nausea [None]
  - Weight decreased [None]
  - Contusion [None]
  - Anxiety [None]
  - Product taste abnormal [None]
